FAERS Safety Report 7289243-X (Version None)
Quarter: 2011Q1

REPORT INFORMATION
  Report Type: 
  Country: None (occurrence: None)
  Receive Date: 20110211
  Receipt Date: 20110209
  Transmission Date: 20110831
  Serious: Yes (Hospitalization)
  Sender: FDA-Public Use
  Company Number: JP-PFIZER INC-2011029466

PATIENT
  Age: 86 Year
  Sex: Female
  Weight: 42 kg

DRUGS (3)
  1. SUTENT [Suspect]
     Indication: RENAL CELL CARCINOMA STAGE IV
     Dosage: 37.5 MG, 1X/DAY
     Route: 048
     Dates: start: 20080827
  2. ASPIRIN [Concomitant]
     Dosage: UNK
     Route: 048
     Dates: start: 20061016
  3. OMEPRAL [Concomitant]
     Dosage: UNK
     Route: 048
     Dates: start: 20080904

REACTIONS (1)
  - SPINAL OSTEOARTHRITIS [None]
